FAERS Safety Report 7591128-6 (Version None)
Quarter: 2011Q3

REPORT INFORMATION
  Report Type: 
  Country: None (occurrence: None)
  Receive Date: 20110705
  Receipt Date: 20110629
  Transmission Date: 20111222
  Serious: Yes (Life-Threatening, Hospitalization, Other)
  Sender: FDA-Public Use
  Company Number: US-ASTRAZENECA-2011SE36907

PATIENT
  Age: 72 Year
  Sex: Female

DRUGS (4)
  1. CRESTOR [Suspect]
     Indication: HYPERCHOLESTEROLAEMIA
     Route: 048
  2. CO Q 10 [Concomitant]
  3. NEXIUM [Suspect]
     Route: 048
  4. CRESTOR [Suspect]
     Route: 048
     Dates: start: 20060101

REACTIONS (11)
  - CARDIAC DISORDER [None]
  - FRACTURED COCCYX [None]
  - MOBILITY DECREASED [None]
  - HEAD INJURY [None]
  - MALAISE [None]
  - FALL [None]
  - GAIT DISTURBANCE [None]
  - APPARENT DEATH [None]
  - BACK PAIN [None]
  - MYALGIA [None]
  - BACK INJURY [None]
